FAERS Safety Report 4984424-X (Version None)
Quarter: 2006Q2

REPORT INFORMATION
  Report Type: 
  Country: None (occurrence: None)
  Receive Date: 20060427
  Receipt Date: 20050505
  Transmission Date: 20061013
  Serious: Yes (Death, Life-Threatening)
  Sender: FDA-Public Use
  Company Number: CA-GLAXOSMITHKLINE-A0557602A

PATIENT
  Age: 71 Year
  Sex: Female
  Weight: 76.2 kg

DRUGS (8)
  1. LAMICTAL [Suspect]
     Indication: DRUG USE FOR UNKNOWN INDICATION
     Dosage: 250MG PER DAY
     Route: 048
     Dates: start: 20031215
  2. LEVAQUIN [Suspect]
     Indication: PNEUMONIA
     Dosage: 250MG PER DAY
     Route: 042
     Dates: start: 20031231, end: 20040106
  3. LAMISIL [Suspect]
  4. DOCUSATE SODIUM [Concomitant]
     Dosage: 100MG TWICE PER DAY
     Dates: start: 20031201, end: 20040116
  5. HUMULIN 70/30 [Concomitant]
     Route: 058
     Dates: start: 20031119
  6. METRONIDAZOLE [Concomitant]
     Dosage: 500MG TWICE PER DAY
     Route: 042
     Dates: start: 20031231, end: 20040110
  7. NICOTINE [Concomitant]
     Dates: start: 20031127
  8. SIMVASTATIN [Concomitant]
     Dosage: 40MG AT NIGHT
     Dates: start: 20031229

REACTIONS (11)
  - BLISTER [None]
  - FACE OEDEMA [None]
  - LEUKOCYTOSIS [None]
  - LIP BLISTER [None]
  - MEDICATION ERROR [None]
  - OEDEMA MOUTH [None]
  - PRURITUS [None]
  - PYREXIA [None]
  - RASH [None]
  - SWELLING FACE [None]
  - SWOLLEN TONGUE [None]
